FAERS Safety Report 13108544 (Version 2)
Quarter: 2017Q1

REPORT INFORMATION
  Report Type: Spontaneous
  Country: US (occurrence: US)
  Receive Date: 20170112
  Receipt Date: 20170307
  Transmission Date: 20170428
  Serious: Yes (Other)
  Sender: FDA-Public Use
  Company Number: US-ACORDA-ACO_125426_2016

PATIENT
  Age: 44 Year
  Sex: Female
  Weight: 72.11 kg

DRUGS (3)
  1. AMPYRA [Suspect]
     Active Substance: DALFAMPRIDINE
     Indication: RELAPSING-REMITTING MULTIPLE SCLEROSIS
     Dosage: 10 MG, Q 12 HRS
     Route: 048
  2. GILENYA [Concomitant]
     Active Substance: FINGOLIMOD HYDROCHLORIDE
     Indication: RELAPSING-REMITTING MULTIPLE SCLEROSIS
     Dosage: 0.5 MG, QD
     Route: 048
     Dates: start: 20160511
  3. VIIBRYD [Suspect]
     Active Substance: VILAZODONE HYDROCHLORIDE
     Indication: PRODUCT USED FOR UNKNOWN INDICATION
     Dosage: UNK
     Route: 065

REACTIONS (23)
  - Fall [Unknown]
  - Vitamin D deficiency [Unknown]
  - Burning sensation [Unknown]
  - Abasia [Unknown]
  - Sciatica [Unknown]
  - Memory impairment [Unknown]
  - Nausea [Unknown]
  - Adverse drug reaction [Unknown]
  - Spinal operation [Recovered/Resolved]
  - Depressed mood [Unknown]
  - Syncope [Unknown]
  - Dizziness [Unknown]
  - Intervertebral disc protrusion [Unknown]
  - Scoliosis [Unknown]
  - Vomiting [Unknown]
  - Gait disturbance [Unknown]
  - Pain in extremity [Unknown]
  - Migraine [Unknown]
  - Blood pressure increased [Unknown]
  - Feeling hot [Unknown]
  - Vitamin B12 decreased [Unknown]
  - Balance disorder [Unknown]
  - Malaise [Recovered/Resolved]

NARRATIVE: CASE EVENT DATE: 20161018
